FAERS Safety Report 5136387-4 (Version None)
Quarter: 2006Q4

REPORT INFORMATION
  Report Type: 
  Country: None (occurrence: None)
  Receive Date: 20061027
  Receipt Date: 20061024
  Transmission Date: 20070319
  Serious: Yes (Hospitalization)
  Sender: FDA-Public Use
  Company Number: GB-BRISTOL-MYERS SQUIBB COMPANY-13555552

PATIENT
  Age: 85 Year
  Sex: Female

DRUGS (6)
  1. APROVEL [Suspect]
  2. CITALOPRAM [Concomitant]
  3. FUROSEMIDE [Concomitant]
  4. OMEPRAZOLE [Concomitant]
  5. ZOPLICONE [Concomitant]
  6. OXAZEPAM [Concomitant]

REACTIONS (4)
  - CONFUSIONAL STATE [None]
  - DEHYDRATION [None]
  - LETHARGY [None]
  - LIVER FUNCTION TEST ABNORMAL [None]
